FAERS Safety Report 7984793-2 (Version None)
Quarter: 2011Q4

REPORT INFORMATION
  Report Type: 
  Country: None (occurrence: None)
  Receive Date: 20111216
  Receipt Date: 20111014
  Transmission Date: 20120403
  Serious: No
  Sender: FDA-Public Use
  Company Number: US-ALLERGAN-1112054US

PATIENT
  Age: 59 Year
  Sex: Female

DRUGS (2)
  1. LATISSE [Suspect]
     Dosage: 1 GTT, UNK
     Route: 061
  2. LATISSE [Suspect]
     Indication: GROWTH OF EYELASHES
     Dosage: 1 GTT, QD
     Route: 061
     Dates: start: 20110401

REACTIONS (4)
  - MADAROSIS [None]
  - SKIN HYPERPIGMENTATION [None]
  - INAPPROPRIATE SCHEDULE OF DRUG ADMINISTRATION [None]
  - EYE PRURITUS [None]
